FAERS Safety Report 7062098-4 (Version None)
Quarter: 2010Q4

REPORT INFORMATION
  Report Type: 
  Country: None (occurrence: None)
  Receive Date: 20101026
  Receipt Date: 20101013
  Transmission Date: 20110411
  Serious: Yes (Other)
  Sender: FDA-Public Use
  Company Number: PHHY2010BR68838

PATIENT
  Sex: Female

DRUGS (9)
  1. DIOVAN HCT [Suspect]
     Indication: HYPERTENSION
     Dosage: ONE TABLET (80/12.5 MG) DAILY
     Route: 048
  2. PRAMIPEXOLE DIHYDROCHLORIDE [Concomitant]
     Indication: PARKINSON'S DISEASE
     Dosage: 1 MG, BID
     Route: 048
  3. CARBIDOPA + LEVODOPA [Concomitant]
     Indication: PARKINSON'S DISEASE
     Dosage: 25/250 MG TWICE DAILY
  4. VENALOT (TROXERUTIN/COUMARIN) [Concomitant]
     Dosage: 15 MG, QD
     Route: 048
  5. AMIODARONE HYDROCHLORIDE [Concomitant]
     Indication: ATRIAL FIBRILLATION
     Dosage: 200 MG, QD
     Route: 048
  6. PURAN T4 [Concomitant]
     Indication: HYPOTHYROIDISM
     Dosage: 25 MCG ONCE DAILY
     Route: 048
  7. CALCITAB D (CALCIUM CARBONATE/COLECALCIFEROL) [Concomitant]
     Indication: OSTEOPOROSIS
     Dosage: ONCE DAILY
     Route: 048
  8. LACTOLIV [Concomitant]
     Dosage: 5 MG, QD
     Route: 048
  9. RIVOTRIL [Concomitant]
     Indication: SOMNOLENCE
     Dosage: 2 MG, QD
     Route: 048

REACTIONS (2)
  - ATRIAL FIBRILLATION [None]
  - BLOOD PRESSURE INADEQUATELY CONTROLLED [None]
